FAERS Safety Report 8103040-4 (Version None)
Quarter: 2012Q1

REPORT INFORMATION
  Report Type: 
  Country: None (occurrence: None)
  Receive Date: 20120201
  Receipt Date: 20120201
  Transmission Date: 20120608
  Serious: No
  Sender: FDA-Public Use
  Company Number: None

PATIENT
  Age: 21 Year
  Sex: Female
  Weight: 54.431 kg

DRUGS (1)
  1. MIRENA [Suspect]
     Indication: CONTRACEPTION
     Dosage: NA
     Dates: start: 20111015, end: 20120131

REACTIONS (4)
  - MALAISE [None]
  - ABDOMINAL PAIN UPPER [None]
  - DEVICE DISLOCATION [None]
  - HAEMORRHAGE [None]
